FAERS Safety Report 4441823-2 (Version None)
Quarter: 2004Q3

REPORT INFORMATION
  Report Type: 
  Country: None (occurrence: None)
  Receive Date: 20040901
  Receipt Date: 20040817
  Transmission Date: 20050211
  Serious: No
  Sender: FDA-Public Use
  Company Number: 04P-167-0271146-00

PATIENT
  Age: 59 Year
  Sex: Female

DRUGS (5)
  1. HUMIRA [Suspect]
     Indication: RHEUMATOID ARTHRITIS
     Dosage: 40 MG, 1 IN 2 WK, SUBCUTANEOUS
     Route: 058
     Dates: start: 20030610, end: 20040812
  2. METHOTREXATE SODIUM [Concomitant]
  3. PREDNISOLONE [Concomitant]
  4. MELOXICAM [Concomitant]
  5. LANSOPRAZOLE [Concomitant]

REACTIONS (4)
  - DYSPNOEA [None]
  - PULMONARY FIBROSIS [None]
  - PULMONARY FUNCTION TEST DECREASED [None]
  - TRANSFER FACTOR REDUCED [None]
